FAERS Safety Report 22095304 (Version 2)
Quarter: 2023Q1

REPORT INFORMATION
  Report Type: Spontaneous
  Country: BR (occurrence: BR)
  Receive Date: 20230314
  Receipt Date: 20230323
  Transmission Date: 20230418
  Serious: Yes (Disabling)
  Sender: FDA-Public Use
  Company Number: BR-MALLINCKRODT-MNK202300246

PATIENT
  Age: 73 Year
  Sex: Female
  Weight: 60 kg

DRUGS (2)
  1. AMITIZA [Suspect]
     Active Substance: LUBIPROSTONE
     Indication: Muscular dystrophy
     Dosage: 24 MICROGRAM, ONCE A DAY (QD)
     Route: 048
  2. AMITIZA [Suspect]
     Active Substance: LUBIPROSTONE
     Indication: Muscular dystrophy
     Dosage: 8 MICROGRAM, 3 TIMES A DAY
     Route: 048
     Dates: start: 202302

REACTIONS (3)
  - Visual impairment [Unknown]
  - Dyschezia [Not Recovered/Not Resolved]
  - Therapeutic product effect variable [Unknown]
